FAERS Safety Report 8364920-8 (Version None)
Quarter: 2012Q2

REPORT INFORMATION
  Report Type: 
  Country: None (occurrence: None)
  Receive Date: 20120514
  Receipt Date: 20120510
  Transmission Date: 20120825
  Serious: Yes (Other)
  Sender: FDA-Public Use
  Company Number: US-PFIZER INC-2012115191

PATIENT
  Sex: Female

DRUGS (4)
  1. CHANTIX [Suspect]
     Indication: SMOKING CESSATION THERAPY
     Dosage: 0.5 MG, 2X/DAY
     Route: 048
     Dates: start: 20120401, end: 20120101
  2. CHANTIX [Suspect]
     Dosage: UNK
     Route: 048
     Dates: start: 20120101
  3. ALPRAZOLAM [Suspect]
     Dosage: UNK, 6X/DAY
     Route: 048
  4. ALPRAZOLAM [Suspect]
     Indication: ANXIETY
     Dosage: UNK, 3X/DAY
     Route: 048

REACTIONS (3)
  - ABNORMAL DREAMS [None]
  - TREMOR [None]
  - ANXIETY [None]
